FAERS Safety Report 4820918-5 (Version None)
Quarter: 2005Q4

REPORT INFORMATION
  Report Type: 
  Country: None (occurrence: None)
  Receive Date: 20051104
  Receipt Date: 20051104
  Transmission Date: 20060501
  Serious: No
  Sender: FDA-Public Use
  Company Number: None

PATIENT
  Age: 68 Year
  Sex: Female
  Weight: 68.9467 kg

DRUGS (6)
  1. ANTICOAGULANT CITRATE DEXTROSE SOLUTION USP (ACD) FORMULA B [Suspect]
     Indication: DIALYSIS
     Dosage: IV RATES = 120-200ML/HR
     Route: 042
     Dates: start: 20051025
  2. NACL [Concomitant]
  3. POTASSIUM CHLORIDE [Concomitant]
  4. DIALYSATE [Concomitant]
  5. DEXTROSE 50% [Concomitant]
  6. MAGNESIUM SULFATE [Concomitant]

REACTIONS (2)
  - BLOOD CALCIUM DECREASED [None]
  - PHARMACEUTICAL PRODUCT COMPLAINT [None]
